FAERS Safety Report 8989204 (Version 1)
Quarter: 2012Q4

REPORT INFORMATION
  Report Type: 
  Country: FR (occurrence: FR)
  Receive Date: 20121227
  Receipt Date: 20121227
  Transmission Date: 20130627
  Serious: Yes (Life-Threatening)
  Sender: FDA-Public Use
  Company Number: FR-MUTUAL PHARMACEUTICAL COMPANY, INC.-IBPF20120013

PATIENT
  Age: 0 Year
  Sex: Male
  Weight: .6 kg

DRUGS (4)
  1. PEDEA [Suspect]
     Indication: PATENT DUCTUS ARTERIOSUS
     Route: 042
     Dates: start: 20121028, end: 20121028
  2. PEDEA [Suspect]
     Route: 042
     Dates: start: 20121029, end: 20121030
  3. PEDEA [Suspect]
     Route: 042
     Dates: start: 20121101, end: 20121101
  4. PEDEA [Suspect]
     Route: 042
     Dates: start: 20121102, end: 20121103

REACTIONS (5)
  - Pulmonary arterial hypertension [Not Recovered/Not Resolved]
  - Intestinal perforation [Not Recovered/Not Resolved]
  - Drug ineffective [None]
  - Neonatal respiratory arrest [None]
  - Ileal perforation [None]
